FAERS Safety Report 4384435-1 (Version None)
Quarter: 2004Q2

REPORT INFORMATION
  Report Type: 
  Country: None (occurrence: None)
  Receive Date: 20040607
  Receipt Date: 20031027
  Transmission Date: 20050107
  Serious: Yes (Other)
  Sender: FDA-Public Use
  Company Number: 350222

PATIENT
  Sex: 0

DRUGS (3)
  1. ACCUTANE [Suspect]
     Indication: DRUG USE FOR UNKNOWN INDICATION
     Dosage: 90 MG DAILY  2 PER DAY
     Dates: start: 20030918, end: 20031021
  2. BIRTH CONTROL PILL (ORAL CONTRACEPTIVE NOS) [Concomitant]
  3. ANTIBIOTICS (ANTIBIOTIC NOS) [Concomitant]

REACTIONS (1)
  - PREGNANCY [None]
